FAERS Safety Report 4374598-6 (Version None)
Quarter: 2004Q2

REPORT INFORMATION
  Report Type: 
  Country: None (occurrence: None)
  Receive Date: 20040609
  Receipt Date: 20040407
  Transmission Date: 20050107
  Serious: Yes (Other)
  Sender: FDA-Public Use
  Company Number: GB-ROCHE-363969

PATIENT
  Age: 55 Year
  Sex: Female
  Weight: 104.7 kg

DRUGS (4)
  1. XENICAL [Suspect]
     Indication: OBESITY
     Route: 048
     Dates: start: 20040317, end: 20040320
  2. FAMOTIDINE [Concomitant]
     Dosage: AT NIGHT.
     Route: 048
     Dates: start: 20031127
  3. ZOLMITRIPTAN [Concomitant]
     Indication: MIGRAINE
     Route: 048
     Dates: start: 20030519
  4. CO-PROXAMOL [Concomitant]
     Dosage: PRN.
     Route: 048
     Dates: start: 20031127

REACTIONS (5)
  - ABDOMINAL DISCOMFORT [None]
  - DYSPNOEA [None]
  - FATIGUE [None]
  - FEELING ABNORMAL [None]
  - HEADACHE [None]
